FAERS Safety Report 4313510-2 (Version None)
Quarter: 2004Q1

REPORT INFORMATION
  Report Type: 
  Country: None (occurrence: None)
  Receive Date: 20040304
  Receipt Date: 20040213
  Transmission Date: 20041129
  Serious: Yes (Hospitalization)
  Sender: FDA-Public Use
  Company Number: USA040259301

PATIENT
  Age: 45 Year
  Sex: Male
  Weight: 72 kg

DRUGS (2)
  1. HUMULIN 70/30 [Suspect]
     Indication: DIABETES MELLITUS
     Dosage: 59 U/DAY
     Dates: start: 20030901
  2. HUMULIN N [Suspect]
     Indication: DIABETES MELLITUS
     Dates: start: 19950101, end: 20030101

REACTIONS (5)
  - BLOOD GLUCOSE INCREASED [None]
  - EAR INFECTION [None]
  - KETOACIDOSIS [None]
  - PANCREATITIS [None]
  - PHARMACEUTICAL PRODUCT COMPLAINT [None]
